FAERS Safety Report 7502483-7 (Version None)
Quarter: 2011Q2

REPORT INFORMATION
  Report Type: 
  Country: None (occurrence: None)
  Receive Date: 20110523
  Receipt Date: 20110523
  Transmission Date: 20111010
  Serious: Yes (Disabling)
  Sender: FDA-Public Use
  Company Number: None

PATIENT
  Sex: Female
  Weight: 74.8435 kg

DRUGS (5)
  1. RISPERIDONE [Suspect]
     Indication: SCHIZOPHRENIA
     Dosage: 3 MGS TWICE A DAY
     Dates: start: 20110512
  2. FLUOXETINE HYDROCHLORIDE [Suspect]
     Dosage: 40 MGS. EVERY MORN.
     Dates: start: 20110512
  3. TRIHEXYPHENIDYL HCL [Suspect]
     Indication: ADVERSE DRUG REACTION
     Dosage: 2 MGS AT BEDTIME
     Dates: start: 20110512
  4. LORAZEPAM [Suspect]
     Indication: NERVOUSNESS
     Dosage: 0.5 MGS. 3 TIMES A DAY
     Dates: start: 20110512
  5. LORAZEPAM [Suspect]
     Indication: ANXIETY
     Dosage: 0.5 MGS. 3 TIMES A DAY
     Dates: start: 20110512

REACTIONS (3)
  - TENSION [None]
  - PHOBIA [None]
  - EYE MOVEMENT DISORDER [None]
